FAERS Safety Report 13178839 (Version 1)
Quarter: 2017Q1

REPORT INFORMATION
  Report Type: Spontaneous
  Country: US (occurrence: US)
  Receive Date: 20170202
  Receipt Date: 20170202
  Transmission Date: 20170428
  Serious: No
  Sender: FDA-Public Use
  Company Number: US-BEH-2017077734

PATIENT
  Age: 14 Year
  Sex: Female

DRUGS (1)
  1. HIZENTRA [Suspect]
     Active Substance: HUMAN IMMUNOGLOBULIN G
     Indication: PRODUCT USED FOR UNKNOWN INDICATION
     Dosage: 6 G, QW
     Route: 058
     Dates: start: 20161118

REACTIONS (1)
  - Infusion site irritation [Unknown]

NARRATIVE: CASE EVENT DATE: 20170127
